FAERS Safety Report 7003670-7 (Version None)
Quarter: 2010Q3

REPORT INFORMATION
  Report Type: 
  Country: None (occurrence: None)
  Receive Date: 20100920
  Receipt Date: 20090730
  Transmission Date: 20110219
  Serious: No
  Sender: FDA-Public Use
  Company Number: US-WYE-H10414209

PATIENT
  Sex: Female

DRUGS (9)
  1. PROTONIX [Suspect]
     Route: 048
  2. DURAGESIC-100 [Concomitant]
     Dosage: DOSE UNKNOWN
     Route: 065
  3. XANAX [Concomitant]
     Dosage: DOSE UNKNOWN, DAILY
     Route: 048
  4. DILAUDID [Concomitant]
     Dosage: DOSE UNKNOWN
     Route: 065
  5. SOMA [Concomitant]
     Dosage: DOSE UNKNOWN, DAILY
     Route: 048
  6. SEROQUEL [Concomitant]
     Dosage: DOSE UNKNOWN
     Route: 048
  7. PHENERGAN [Concomitant]
     Dosage: DOSE UNKNOWN
     Route: 065
  8. CARAFATE [Concomitant]
     Dosage: DOSE UNKNOWN, DAILY
     Route: 048
  9. PROZAC [Concomitant]
     Dosage: DOSE UNKNOWN, DAILY
     Route: 048

REACTIONS (1)
  - MEDICATION RESIDUE [None]
